FAERS Safety Report 19408462 (Version 1)
Quarter: 2021Q2

REPORT INFORMATION
  Report Type: Spontaneous
  Country: US (occurrence: US)
  Receive Date: 20210612
  Receipt Date: 20210612
  Transmission Date: 20210717
  Serious: Yes (Other)
  Sender: FDA-Public Use
  Company Number: US-TEVA-2021-US-1920621

PATIENT
  Age: 17 Year
  Sex: Male
  Weight: 49.9 kg

DRUGS (3)
  1. XYZAL [Concomitant]
     Active Substance: LEVOCETIRIZINE DIHYDROCHLORIDE
  2. PROAIR RESPICLICK [Suspect]
     Active Substance: ALBUTEROL SULFATE
     Indication: DYSPNOEA
     Dosage: 2 PUFFS BEFORE EXERCISE
     Dates: start: 20210601, end: 20210601
  3. OTC CLARITIN [Concomitant]

REACTIONS (7)
  - Presyncope [Unknown]
  - Dyspnoea [Unknown]
  - Gait disturbance [Unknown]
  - Product formulation issue [Unknown]
  - Palpitations [Unknown]
  - Speech disorder [Unknown]
  - Diaphragmalgia [Unknown]

NARRATIVE: CASE EVENT DATE: 20210601
